FAERS Safety Report 5382491-5 (Version None)
Quarter: 2007Q3

REPORT INFORMATION
  Report Type: 
  Country: None (occurrence: None)
  Receive Date: 20070710
  Receipt Date: 20070627
  Transmission Date: 20080115
  Serious: Yes (Congenital Anomaly)
  Sender: FDA-Public Use
  Company Number: JP-ELI_LILLY_AND_COMPANY-JP200707001038

PATIENT
  Age: 1 Day
  Sex: Female
  Weight: 4 kg

DRUGS (1)
  1. ZYPREXA [Suspect]
     Dosage: UNK, UNK
     Route: 064
     Dates: start: 20061218, end: 20070509

REACTIONS (2)
  - DRUG EXPOSURE DURING PREGNANCY [None]
  - PATENT DUCTUS ARTERIOSUS [None]
